FAERS Safety Report 11879206 (Version 7)
Quarter: 2020Q2

REPORT INFORMATION
  Report Type: Spontaneous
  Country: US (occurrence: US)
  Receive Date: 20151230
  Receipt Date: 20200427
  Transmission Date: 20200713
  Serious: Yes (Other)
  Sender: FDA-Public Use
  Company Number: US-PFIZER INC-2015433482

PATIENT
  Age: 76 Year
  Sex: Female
  Weight: 52 kg

DRUGS (6)
  1. LYRICA [Suspect]
     Active Substance: PREGABALIN
     Dosage: 100 MG, 2X/DAY
     Route: 048
     Dates: start: 2015, end: 2015
  2. LYRICA [Suspect]
     Active Substance: PREGABALIN
     Dosage: 150 MG, TWICE A DAY
     Route: 048
     Dates: start: 201510
  3. ZETIA [Concomitant]
     Active Substance: EZETIMIBE
     Indication: OSTEOPOROSIS
     Dosage: UNK
  4. ELIQUIS [Concomitant]
     Active Substance: APIXABAN
     Dosage: UNK
     Dates: end: 20151220
  5. LYRICA [Suspect]
     Active Substance: PREGABALIN
     Indication: NEURALGIA
     Dosage: 25 MG, UNK
     Route: 048
     Dates: start: 201509, end: 2015
  6. LYRICA [Suspect]
     Active Substance: PREGABALIN
     Indication: AMPUTATION STUMP PAIN
     Dosage: 50 MG, UNK (INCREASED)
     Route: 048
     Dates: start: 2015, end: 2015

REACTIONS (5)
  - Drug ineffective [Unknown]
  - Condition aggravated [Not Recovered/Not Resolved]
  - Amputation stump pain [Not Recovered/Not Resolved]
  - Spinal fracture [Unknown]
  - Intentional product use issue [Unknown]
